FAERS Safety Report 23981249 (Version 1)
Quarter: 2024Q2

REPORT INFORMATION
  Report Type: Spontaneous
  Country: US (occurrence: None)
  Receive Date: 20240614
  Receipt Date: 20240614
  Transmission Date: 20240716
  Serious: No
  Sender: FDA-Public Use
  Company Number: None

PATIENT
  Age: 47 Year
  Sex: Female
  Weight: 108.7 kg

DRUGS (2)
  1. BIKTARVY [Suspect]
     Active Substance: BICTEGRAVIR SODIUM\EMTRICITABINE\TENOFOVIR ALAFENAMIDE FUMARATE
     Indication: HIV infection
     Dosage: 1 DF DOSAGE FORM DAILY ORAL ?
     Route: 048
     Dates: start: 20221007, end: 20240614
  2. VALSARTAN [Concomitant]

REACTIONS (1)
  - Renal pain [None]

NARRATIVE: CASE EVENT DATE: 20240521
